FAERS Safety Report 25575700 (Version 3)
Quarter: 2025Q3

REPORT INFORMATION
  Report Type: Report from Study
  Country: US (occurrence: US)
  Receive Date: 20250718
  Receipt Date: 20250821
  Transmission Date: 20251020
  Serious: Yes (Hospitalization)
  Sender: TAKEDA
  Company Number: US-TAKEDA-2025TUS063724

PATIENT
  Sex: Female
  Weight: 73 kg

DRUGS (20)
  1. TEDUGLUTIDE [Suspect]
     Active Substance: TEDUGLUTIDE
     Indication: Short-bowel syndrome
     Dosage: 4.38 MILLIGRAM, QD
  2. TEDUGLUTIDE [Suspect]
     Active Substance: TEDUGLUTIDE
     Dosage: 4.38 MILLIGRAM, QD
  3. TEDUGLUTIDE [Suspect]
     Active Substance: TEDUGLUTIDE
  4. TEDUGLUTIDE [Suspect]
     Active Substance: TEDUGLUTIDE
  5. VITAMIN D3 [Concomitant]
     Active Substance: CHOLECALCIFEROL
  6. INTRALIPID [Concomitant]
     Active Substance: EGG PHOSPHOLIPIDS\GLYCERIN\SOYBEAN OIL
  7. AMOXICILLIN [Concomitant]
     Active Substance: AMOXICILLIN
  8. UNSPECIFIED INGREDIENT [Concomitant]
     Active Substance: UNSPECIFIED INGREDIENT
  9. HUMALOG [Concomitant]
     Active Substance: INSULIN LISPRO
  10. HUMULIN 70/30 [Concomitant]
     Active Substance: INSULIN HUMAN
  11. LATANOPROST [Concomitant]
     Active Substance: LATANOPROST
  12. Cetiriz-d [Concomitant]
  13. FAMOTIDINE [Concomitant]
     Active Substance: FAMOTIDINE
  14. ATORVASTATIN CALCIUM [Concomitant]
     Active Substance: ATORVASTATIN CALCIUM
  15. METOPROLOL TARTRATE [Concomitant]
     Active Substance: METOPROLOL TARTRATE
  16. LOMOTIL [Concomitant]
     Active Substance: ATROPINE SULFATE\DIPHENOXYLATE HYDROCHLORIDE
  17. IMODIUM [Concomitant]
     Active Substance: LOPERAMIDE HYDROCHLORIDE
  18. TAVABOROLE [Concomitant]
     Active Substance: TAVABOROLE
  19. TPN [Concomitant]
     Active Substance: AMINO ACIDS\DEXTROSE\ELECTROLYTES NOS\SOYBEAN OIL
  20. Brimonidine;Dorzolamide [Concomitant]

REACTIONS (4)
  - Short-bowel syndrome [Unknown]
  - Drug ineffective [Unknown]
  - Fungal foot infection [Unknown]
  - Cholelithiasis [Unknown]
